FAERS Safety Report 5495313-9 (Version None)
Quarter: 2007Q4

REPORT INFORMATION
  Report Type: 
  Country: None (occurrence: None)
  Receive Date: 20071024
  Receipt Date: 20071012
  Transmission Date: 20080405
  Serious: Yes (Hospitalization)
  Sender: FDA-Public Use
  Company Number: CH-PFIZER INC-2007086197

PATIENT
  Sex: Female

DRUGS (6)
  1. SOLU-MEDROL [Suspect]
     Indication: MULTIPLE SCLEROSIS
     Route: 042
     Dates: start: 20070414, end: 20070416
  2. PREDNISONE [Suspect]
     Indication: MULTIPLE SCLEROSIS
     Route: 048
     Dates: start: 20070417, end: 20070509
  3. BELARA [Concomitant]
     Route: 048
  4. NEXIUM [Concomitant]
     Dosage: DAILY DOSE:20MG
     Route: 048
  5. CALCIMAGON-D3 [Concomitant]
     Route: 048
     Dates: start: 20070401, end: 20070509
  6. ALGIFOR [Concomitant]
     Route: 048
     Dates: start: 20070401, end: 20070501

REACTIONS (1)
  - HEPATITIS TOXIC [None]
